FAERS Safety Report 9132713 (Version 1)
Quarter: 2013Q1

REPORT INFORMATION
  Report Type: Spontaneous
  Country: SK (occurrence: SK)
  Receive Date: 20130301
  Receipt Date: 20130301
  Transmission Date: 20140127
  Serious: Yes (Other)
  Sender: FDA-Public Use
  Company Number: SK-ROCHE-1195645

PATIENT
  Sex: Male

DRUGS (5)
  1. RITUXIMAB [Suspect]
     Indication: B-CELL LYMPHOMA
     Route: 065
  2. CYCLOFOSFAMIDE [Concomitant]
  3. DOXORUBICINE [Concomitant]
  4. VINCRISTINE [Concomitant]
  5. PREDNISOLONE [Concomitant]

REACTIONS (5)
  - Sepsis [Unknown]
  - Presyncope [Unknown]
  - Visual impairment [Unknown]
  - Gastrointestinal hypermotility [Unknown]
  - Dyspnoea [Unknown]
